FAERS Safety Report 5518377-2 (Version None)
Quarter: 2007Q4

REPORT INFORMATION
  Report Type: 
  Country: None (occurrence: None)
  Receive Date: 20071115
  Receipt Date: 20071107
  Transmission Date: 20080405
  Serious: Yes (Hospitalization, Other)
  Sender: FDA-Public Use
  Company Number: US-GILEAD-2007-0014298

PATIENT
  Sex: Female
  Weight: 77.634 kg

DRUGS (7)
  1. LETAIRIS [Suspect]
     Indication: PULMONARY HYPERTENSION
     Route: 048
     Dates: start: 20070830, end: 20071001
  2. DILTIAZEM [Concomitant]
     Route: 048
     Dates: start: 20070101
  3. ASPIRIN [Concomitant]
     Route: 048
  4. DIGOXIN [Concomitant]
     Route: 048
  5. LASIX [Concomitant]
     Route: 048
  6. POTASSIUM CHLORIDE [Concomitant]
     Route: 048
  7. FLOLAN [Concomitant]
     Dosage: 12 MG/KG/MIN
     Route: 042
     Dates: start: 20070101

REACTIONS (4)
  - ARTHRALGIA [None]
  - HAEMATOCRIT DECREASED [None]
  - OEDEMA PERIPHERAL [None]
  - PLATELET COUNT DECREASED [None]
